FAERS Safety Report 4447712-1 (Version None)
Quarter: 2004Q3

REPORT INFORMATION
  Report Type: 
  Country: None (occurrence: None)
  Receive Date: 20040729
  Receipt Date: 20040528
  Transmission Date: 20050211
  Serious: No
  Sender: FDA-Public Use
  Company Number: PAGL/04/02/USA

PATIENT
  Age: 57 Year
  Sex: Female

DRUGS (1)
  1. PANGLOBULIN [Suspect]
     Indication: INFECTION
     Dosage: I.V.
     Route: 042
     Dates: start: 20040518, end: 20040518

REACTIONS (5)
  - ANAPHYLACTOID REACTION [None]
  - DYSPNOEA [None]
  - FEELING ABNORMAL [None]
  - HYPOTENSION [None]
  - PULSE ABSENT [None]
